FAERS Safety Report 24569236 (Version 2)
Quarter: 2025Q2

REPORT INFORMATION
  Report Type: Spontaneous
  Country: CA (occurrence: CA)
  Receive Date: 20241031
  Receipt Date: 20250401
  Transmission Date: 20250717
  Serious: Yes (Other)
  Sender: MYLAN
  Company Number: CA-MYLANLABS-2024M1098336

PATIENT
  Age: 71 Year
  Sex: Male

DRUGS (7)
  1. PHENYTOIN [Interacting]
     Active Substance: PHENYTOIN
     Indication: Epilepsy
  2. PHENYTOIN [Interacting]
     Active Substance: PHENYTOIN
  3. WARFARIN [Interacting]
     Active Substance: WARFARIN
     Indication: Atrial fibrillation
  4. RIVAROXABAN [Interacting]
     Active Substance: RIVAROXABAN
     Indication: Embolism venous
  5. CARBAMAZEPINE [Interacting]
     Active Substance: CARBAMAZEPINE
     Indication: Epilepsy
  6. APIXABAN [Interacting]
     Active Substance: APIXABAN
     Indication: Atrial fibrillation
     Dosage: 50 MILLIGRAM, BID (2 EVERY 1 DAYS)
  7. RIVAROXABAN [Interacting]
     Active Substance: RIVAROXABAN
     Indication: Embolism venous

REACTIONS (3)
  - Cerebrovascular accident [Unknown]
  - Deep vein thrombosis [Unknown]
  - Drug interaction [Unknown]
